FAERS Safety Report 16001221 (Version 2)
Quarter: 2019Q2

REPORT INFORMATION
  Report Type: Spontaneous
  Country: US (occurrence: US)
  Receive Date: 20190225
  Receipt Date: 20190429
  Transmission Date: 20190711
  Serious: Yes (Other)
  Sender: FDA-Public Use
  Company Number: US-PFIZER INC-2019072883

PATIENT
  Age: 44 Year
  Sex: Female
  Weight: 184 kg

DRUGS (1)
  1. LYRICA [Suspect]
     Active Substance: PREGABALIN
     Indication: DIABETIC NEUROPATHY
     Dosage: 150 MG, 2X/DAY (TAKES 2 CAPSULES IN THE MORNING, 2 CAPSULES AT NIGHT)
     Route: 048

REACTIONS (5)
  - Hypertension [Unknown]
  - Product use issue [Unknown]
  - Brain neoplasm [Unknown]
  - Brain oedema [Unknown]
  - Drug ineffective [Unknown]
